FAERS Safety Report 6086452-2 (Version None)
Quarter: 2009Q1

REPORT INFORMATION
  Report Type: 
  Country: None (occurrence: None)
  Receive Date: 20090223
  Receipt Date: 20090216
  Transmission Date: 20090719
  Serious: Yes (Hospitalization)
  Sender: FDA-Public Use
  Company Number: US-ASTRAZENECA-2009UW04432

PATIENT
  Age: 37 Year
  Sex: Female

DRUGS (1)
  1. ATACAND [Suspect]
     Route: 048

REACTIONS (1)
  - PAIN [None]
